FAERS Safety Report 11139579 (Version 2)
Quarter: 2015Q2

REPORT INFORMATION
  Report Type: Spontaneous
  Country: US (occurrence: US)
  Receive Date: 20150527
  Receipt Date: 20150528
  Transmission Date: 20150821
  Serious: Yes (Hospitalization, Other)
  Sender: FDA-Public Use
  Company Number: US-ASTRAZENECA-2010BM01892

PATIENT
  Age: 47 Year
  Sex: Female
  Weight: 63.5 kg

DRUGS (25)
  1. BYETTA [Suspect]
     Active Substance: EXENATIDE
     Indication: TYPE 2 DIABETES MELLITUS
     Route: 065
  2. KLONOPIN [Concomitant]
     Active Substance: CLONAZEPAM
     Route: 048
  3. FISH OIL [Concomitant]
     Active Substance: FISH OIL
     Dosage: 1600
  4. BAYER [Concomitant]
     Active Substance: ASPIRIN
  5. BYETTA [Suspect]
     Active Substance: EXENATIDE
     Indication: TYPE 2 DIABETES MELLITUS
     Dosage: TWO TIMES A DAY
     Route: 065
  6. METOPROLOL [Concomitant]
     Active Substance: METOPROLOL
  7. ACETAMINOPHEN. [Concomitant]
     Active Substance: ACETAMINOPHEN
  8. BACLOFEN. [Concomitant]
     Active Substance: BACLOFEN
  9. ALDACTONE [Concomitant]
     Active Substance: SPIRONOLACTONE
     Route: 048
  10. BYETTA [Suspect]
     Active Substance: EXENATIDE
     Indication: TYPE 2 DIABETES MELLITUS
     Dosage: 5 ?G, QD
     Route: 065
     Dates: start: 2005
  11. DIOVAN [Concomitant]
     Active Substance: VALSARTAN
     Indication: CARDIAC DISORDER
     Route: 048
  12. ARMOUR [Concomitant]
     Indication: CARDIAC DISORDER
  13. VITAMIN D [Concomitant]
     Active Substance: CHOLECALCIFEROL
  14. SOMA [Concomitant]
     Active Substance: CARISOPRODOL
     Dosage: AS REQUIRED
  15. XANAX [Concomitant]
     Active Substance: ALPRAZOLAM
     Route: 048
  16. TOPROL XL [Suspect]
     Active Substance: METOPROLOL SUCCINATE
     Indication: CARDIAC DISORDER
     Route: 048
  17. SYNTHROID [Concomitant]
     Active Substance: LEVOTHYROXINE SODIUM
     Route: 048
  18. PRENATAL VITAMIN [Concomitant]
     Active Substance: VITAMINS
  19. BYETTA [Suspect]
     Active Substance: EXENATIDE
     Indication: TYPE 2 DIABETES MELLITUS
     Dosage: 5 ?G, QD
     Route: 065
  20. BYETTA [Suspect]
     Active Substance: EXENATIDE
     Indication: TYPE 2 DIABETES MELLITUS
     Dosage: ONCE PER DAY
     Route: 065
  21. TOPROL XL [Suspect]
     Active Substance: METOPROLOL SUCCINATE
     Indication: CARDIAC DISORDER
     Route: 048
  22. ALDACTONE [Concomitant]
     Active Substance: SPIRONOLACTONE
     Route: 048
  23. XANAX [Concomitant]
     Active Substance: ALPRAZOLAM
     Route: 048
  24. PERCOCET [Concomitant]
     Active Substance: ACETAMINOPHEN\OXYCODONE HYDROCHLORIDE
     Dosage: EVERY DAY
  25. VITAMIN E [Concomitant]
     Active Substance: .ALPHA.-TOCOPHEROL

REACTIONS (30)
  - Hernia [Unknown]
  - Hunger [Unknown]
  - Hypoglycaemia [Unknown]
  - Device misuse [Unknown]
  - Tremor [Unknown]
  - Presyncope [Unknown]
  - Body temperature fluctuation [Unknown]
  - Thyroid cancer [Unknown]
  - Hyperglycaemia [Unknown]
  - Hypophagia [Unknown]
  - Intentional product misuse [Unknown]
  - Malignant melanoma [Unknown]
  - Blood glucose fluctuation [Unknown]
  - Feeling abnormal [Unknown]
  - Decreased appetite [Unknown]
  - Blood glucose increased [Unknown]
  - Malaise [Unknown]
  - Prescribed underdose [Unknown]
  - Thyrotoxic crisis [Unknown]
  - Weight decreased [Unknown]
  - Influenza [Unknown]
  - Thirst [Unknown]
  - Scar [Unknown]
  - Emotional disorder [Unknown]
  - Incorrect dose administered [Not Recovered/Not Resolved]
  - Blood glucose decreased [Unknown]
  - Weight increased [Unknown]
  - Insomnia [Unknown]
  - Drug dose omission [Unknown]
  - No therapeutic response [Unknown]

NARRATIVE: CASE EVENT DATE: 2005
